FAERS Safety Report 9459136 (Version 1)
Quarter: 2013Q3

REPORT INFORMATION
  Report Type: Spontaneous
  Country: US (occurrence: US)
  Receive Date: 20130814
  Receipt Date: 20130814
  Transmission Date: 20140515
  Serious: Yes (Hospitalization, Disabling)
  Sender: FDA-Public Use
  Company Number: US-CELGENEUS-163-21880-13081151

PATIENT
  Sex: Male

DRUGS (6)
  1. REVLIMID [Suspect]
     Indication: PLASMA CELL MYELOMA
     Route: 048
     Dates: start: 200811, end: 2008
  2. REVLIMID [Suspect]
     Route: 048
     Dates: start: 200912, end: 2009
  3. REVLIMID [Suspect]
     Route: 048
     Dates: start: 201001, end: 2010
  4. REVLIMID [Suspect]
     Route: 048
     Dates: start: 201004, end: 2010
  5. REVLIMID [Suspect]
     Route: 048
     Dates: start: 201005
  6. REVLIMID [Suspect]
     Route: 048
     Dates: start: 20120125

REACTIONS (2)
  - Convulsion [Unknown]
  - Infection [Unknown]
